FAERS Safety Report 4786991-8 (Version None)
Quarter: 2005Q4

REPORT INFORMATION
  Report Type: 
  Country: None (occurrence: None)
  Receive Date: 20051004
  Receipt Date: 20050517
  Transmission Date: 20060501
  Serious: Yes (Other)
  Sender: FDA-Public Use
  Company Number: GB-GLAXOSMITHKLINE-B0381301A

PATIENT
  Age: 57 Year
  Sex: Male
  Weight: 107 kg

DRUGS (6)
  1. AVANDAMET [Suspect]
     Indication: DIABETES MELLITUS MANAGEMENT
     Dosage: 2TAB TWICE PER DAY
     Route: 048
     Dates: start: 20050301, end: 20050418
  2. METFORMIN [Concomitant]
     Indication: DIABETES MELLITUS MANAGEMENT
     Dates: start: 20031124, end: 20050301
  3. ALFUZOSIN [Concomitant]
  4. NATRILIX [Concomitant]
  5. INDERAL [Concomitant]
  6. GOPTEN [Concomitant]

REACTIONS (5)
  - ASPARTATE AMINOTRANSFERASE INCREASED [None]
  - GAMMA-GLUTAMYLTRANSFERASE INCREASED [None]
  - LETHARGY [None]
  - LIVER FUNCTION TEST ABNORMAL [None]
  - PLATELET COUNT DECREASED [None]
